FAERS Safety Report 5890035-4 (Version None)
Quarter: 2008Q3

REPORT INFORMATION
  Report Type: 
  Country: None (occurrence: None)
  Receive Date: 20080919
  Receipt Date: 20080908
  Transmission Date: 20090109
  Serious: Yes (Death, Hospitalization, Other)
  Sender: FDA-Public Use
  Company Number: DK-PFIZER INC-2008063851

PATIENT
  Sex: Male

DRUGS (1)
  1. ZYVOXID [Suspect]
     Indication: ENDOCARDITIS
     Dates: start: 20080709, end: 20080724

REACTIONS (2)
  - DEATH [None]
  - THROMBOCYTOPENIA [None]
